FAERS Safety Report 10142539 (Version 1)
Quarter: 2014Q2

REPORT INFORMATION
  Report Type: Report from Study
  Country: PE (occurrence: PE)
  Receive Date: 20140430
  Receipt Date: 20140430
  Transmission Date: 20141212
  Serious: Yes (Death)
  Sender: FDA-Public Use
  Company Number: PE-BRISTOL-MYERS SQUIBB COMPANY-20678405

PATIENT
  Age: 48 Year
  Sex: Female

DRUGS (1)
  1. YERVOY [Suspect]
     Dosage: 2 APPLICATIONS OF 4 AMPS

REACTIONS (1)
  - Death [Fatal]
